FAERS Safety Report 25258104 (Version 1)
Quarter: 2025Q2

REPORT INFORMATION
  Report Type: Spontaneous
  Country: US (occurrence: US)
  Receive Date: 20250501
  Receipt Date: 20250501
  Transmission Date: 20250716
  Serious: Yes (Life-Threatening, Hospitalization, Other)
  Sender: AMGEN
  Company Number: US-AMGEN-USASP2025081885

PATIENT
  Sex: Male

DRUGS (7)
  1. REPATHA [Suspect]
     Active Substance: EVOLOCUMAB
     Indication: Type V hyperlipidaemia
     Route: 065
     Dates: start: 20241218
  2. REPATHA [Suspect]
     Active Substance: EVOLOCUMAB
     Indication: Type IIa hyperlipidaemia
     Dosage: 140 MILLIGRAM, Q2WK (ROUTE: THIGH AND STOMACH AREA)
     Route: 065
     Dates: start: 20250102
  3. LEVOTHYROXINE [Concomitant]
     Active Substance: LEVOTHYROXINE
     Indication: Thyroid disorder
  4. VITAMINS [Concomitant]
     Active Substance: VITAMINS
  5. FISH OIL [Concomitant]
     Active Substance: FISH OIL
  6. COD LIVER OIL [Concomitant]
     Active Substance: COD LIVER OIL
  7. DIETARY SUPPLEMENT [Concomitant]
     Active Substance: DIETARY SUPPLEMENT
     Indication: Blood cholesterol abnormal
     Dosage: UNK UNK, BID

REACTIONS (4)
  - Intestinal strangulation [Recovering/Resolving]
  - Abdominal adhesions [Recovering/Resolving]
  - Intestinal ischaemia [Recovered/Resolved]
  - Mental disorder [Unknown]
